FAERS Safety Report 9295164 (Version 1)
Quarter: 2013Q1

REPORT INFORMATION
  Report Type: Spontaneous
  Country: US (occurrence: None)
  Receive Date: 20130103
  Receipt Date: 20130103
  Transmission Date: 20140127
  Serious: Yes (Other)
  Sender: FDA-Public Use
  Company Number: DSA_55143_2012

PATIENT
  Age: 56 None
  Sex: Male
  Weight: 80.74 kg

DRUGS (1)
  1. XENAZINE [Suspect]
     Indication: HUNTINGTON^S DISEASE
     Route: 048
     Dates: start: 20111129

REACTIONS (2)
  - Disturbance in attention [None]
  - Confusional state [None]
